FAERS Safety Report 17912530 (Version 1)
Quarter: 2020Q2

REPORT INFORMATION
  Report Type: Spontaneous
  Country: BR (occurrence: BR)
  Receive Date: 20200618
  Receipt Date: 20200618
  Transmission Date: 20200714
  Serious: Yes (Death, Hospitalization, Other)
  Sender: FDA-Public Use
  Company Number: BR-PFIZER INC-2020234731

PATIENT
  Sex: Female

DRUGS (1)
  1. XALATAN [Suspect]
     Active Substance: LATANOPROST
     Indication: GLAUCOMA
     Dosage: 1 DROP, DAILY (EVERY NIGHT)
     Dates: start: 2014, end: 2018

REACTIONS (7)
  - Epilepsy [Unknown]
  - Renal failure [Fatal]
  - Cardiac failure [Fatal]
  - Pulmonary embolism [Unknown]
  - Coma [Unknown]
  - Cardiac arrest [Unknown]
  - Cardiac disorder [Unknown]

NARRATIVE: CASE EVENT DATE: 2018
